FAERS Safety Report 17180942 (Version 1)
Quarter: 2019Q4

REPORT INFORMATION
  Report Type: Report from Study
  Country: US (occurrence: US)
  Receive Date: 20191220
  Receipt Date: 20191220
  Transmission Date: 20200122
  Serious: Yes (Other)
  Sender: FDA-Public Use
  Company Number: US-ROCHE-2502077

PATIENT

DRUGS (3)
  1. GEMCITABINE. [Suspect]
     Active Substance: GEMCITABINE
     Indication: PANCREATIC CARCINOMA METASTATIC
     Route: 042
  2. ERLOTINIB [Suspect]
     Active Substance: ERLOTINIB
     Indication: PANCREATIC CARCINOMA METASTATIC
     Route: 048
  3. VISMODEGIB. [Suspect]
     Active Substance: VISMODEGIB
     Indication: PANCREATIC CARCINOMA METASTATIC
     Route: 048

REACTIONS (9)
  - Nausea [Unknown]
  - Decreased appetite [Unknown]
  - Abdominal pain [Unknown]
  - Ocular vascular disorder [Unknown]
  - Rash [Unknown]
  - Hiccups [Unknown]
  - Thrombocytopenia [Unknown]
  - Hyponatraemia [Unknown]
  - Cystitis [Unknown]
